FAERS Safety Report 20230315 (Version 5)
Quarter: 2022Q2

REPORT INFORMATION
  Report Type: Spontaneous
  Country: CA (occurrence: CA)
  Receive Date: 20211226
  Receipt Date: 20220621
  Transmission Date: 20220721
  Serious: Yes (Other)
  Sender: FDA-Public Use
  Company Number: CA-CELLTRION INC.-2020CA019717

PATIENT

DRUGS (13)
  1. INFLECTRA [Suspect]
     Active Substance: INFLIXIMAB-DYYB
     Indication: Crohn^s disease
     Dosage: 400MG, EVERY 8 WEEKS FOR 12 MONTHS
     Route: 042
     Dates: start: 20200302, end: 20200302
  2. INFLECTRA [Suspect]
     Active Substance: INFLIXIMAB-DYYB
     Dosage: 400MG, EVERY 8 WEEKS FOR 12 MONTHS
     Route: 042
     Dates: start: 20200626
  3. INFLECTRA [Suspect]
     Active Substance: INFLIXIMAB-DYYB
     Dosage: 400MG, EVERY 8 WEEKS FOR 12 MONTHS
     Route: 042
     Dates: start: 20200821
  4. INFLECTRA [Suspect]
     Active Substance: INFLIXIMAB-DYYB
     Dosage: 400MG, EVERY 8 WEEKS FOR 12 MONTHS
     Route: 042
     Dates: start: 20201024
  5. INFLECTRA [Suspect]
     Active Substance: INFLIXIMAB-DYYB
     Dosage: 400MG, EVERY 8 WEEKS FOR 12 MONTHS
     Route: 042
     Dates: start: 20210108
  6. INFLECTRA [Suspect]
     Active Substance: INFLIXIMAB-DYYB
     Dosage: 400MG, EVERY 8 WEEKS FOR 12 MONTHS
     Route: 042
     Dates: start: 20210429
  7. INFLECTRA [Suspect]
     Active Substance: INFLIXIMAB-DYYB
     Dosage: 400MG, EVERY 8 WEEKS FOR 12 MONTHS
     Route: 042
     Dates: start: 20210629, end: 20210629
  8. INFLECTRA [Suspect]
     Active Substance: INFLIXIMAB-DYYB
     Dosage: 400MG, EVERY 8 WEEKS FOR 12 MONTHS
     Route: 042
     Dates: start: 20210821
  9. INFLECTRA [Suspect]
     Active Substance: INFLIXIMAB-DYYB
     Dosage: 400MG, EVERY 8 WEEKS FOR 12 MONTHS
     Route: 042
     Dates: start: 20211016
  10. INFLECTRA [Suspect]
     Active Substance: INFLIXIMAB-DYYB
     Dosage: 400MG, EVERY 8 WEEKS FOR 12 MONTHS
     Route: 042
     Dates: start: 20211215
  11. INFLECTRA [Suspect]
     Active Substance: INFLIXIMAB-DYYB
     Dosage: 400MG, EVERY 8 WEEKS FOR 12 MONTHS
     Route: 042
     Dates: start: 20220212
  12. INFLECTRA [Suspect]
     Active Substance: INFLIXIMAB-DYYB
     Dosage: 400MG, EVERY 8 WEEKS FOR 12 MONTHS
     Route: 042
     Dates: start: 20220402
  13. INFLECTRA [Suspect]
     Active Substance: INFLIXIMAB-DYYB
     Dosage: 400MG, EVERY 8 WEEKS FOR 12 MONTHS
     Route: 042
     Dates: start: 20220611

REACTIONS (15)
  - Blood pressure systolic increased [Unknown]
  - Inappropriate schedule of product administration [Unknown]
  - Off label use [Unknown]
  - Intentional product use issue [Unknown]
  - Blood pressure increased [Unknown]
  - Heart rate increased [Unknown]
  - Anxiety [Unknown]
  - Panic attack [Unknown]
  - Nervousness [Unknown]
  - White coat hypertension [Not Recovered/Not Resolved]
  - Nasopharyngitis [Unknown]
  - Oropharyngeal pain [Unknown]
  - Nasal congestion [Unknown]
  - COVID-19 [Unknown]
  - Blood pressure increased [Unknown]

NARRATIVE: CASE EVENT DATE: 20200302
